FAERS Safety Report 8576962-8 (Version None)
Quarter: 2012Q3

REPORT INFORMATION
  Report Type: 
  Country: None (occurrence: None)
  Receive Date: 20120807
  Receipt Date: 20120723
  Transmission Date: 20120928
  Serious: Yes (Hospitalization)
  Sender: FDA-Public Use
  Company Number: US-ARROW-2012-13425

PATIENT
  Age: 70 Year
  Sex: Male

DRUGS (1)
  1. CLINDAMYCIN HCL [Suspect]
     Indication: CELLULITIS
     Dosage: UNK
     Route: 048

REACTIONS (1)
  - TUBULOINTERSTITIAL NEPHRITIS [None]
